FAERS Safety Report 11241674 (Version 1)
Quarter: 2015Q3

REPORT INFORMATION
  Report Type: Spontaneous
  Country: US (occurrence: US)
  Receive Date: 20150706
  Receipt Date: 20150706
  Transmission Date: 20151125
  Serious: Yes (Life-Threatening, Hospitalization, Other)
  Sender: FDA-Public Use
  Company Number: US-GLAXOSMITHKLINE INC.-US2015GSK096921

PATIENT
  Age: 72 Year
  Sex: Female

DRUGS (1)
  1. TAFINLAR [Suspect]
     Active Substance: DABRAFENIB MESYLATE
     Indication: PRODUCT USED FOR UNKNOWN INDICATION
     Dosage: 150 MG, BID
     Route: 048
     Dates: start: 20141218

REACTIONS (4)
  - Balance disorder [Unknown]
  - Transient ischaemic attack [Unknown]
  - Visual impairment [Unknown]
  - Hypokinesia [Unknown]

NARRATIVE: CASE EVENT DATE: 20150529
